FAERS Safety Report 19348849 (Version 1)
Quarter: 2021Q2

REPORT INFORMATION
  Report Type: Spontaneous
  Country: US (occurrence: US)
  Receive Date: 20210531
  Receipt Date: 20210531
  Transmission Date: 20210717
  Serious: No
  Sender: FDA-Public Use
  Company Number: US-ASTRAZENECA-2021A453011

PATIENT
  Age: 831 Month
  Sex: Female
  Weight: 61.7 kg

DRUGS (3)
  1. CALQUENCE [Suspect]
     Active Substance: ACALABRUTINIB
     Indication: WALDENSTROM^S MACROGLOBULINAEMIA
     Dosage: 2 CAPSULES
     Route: 048
     Dates: start: 20210510
  2. TYLENOL [Interacting]
     Active Substance: ACETAMINOPHEN
     Route: 065
  3. CALQUENCE [Interacting]
     Active Substance: ACALABRUTINIB
     Indication: WALDENSTROM^S MACROGLOBULINAEMIA
     Dosage: 1CAPSULES
     Route: 048
     Dates: start: 20210512

REACTIONS (5)
  - Drug intolerance [Not Recovered/Not Resolved]
  - Nausea [Recovered/Resolved]
  - Drug interaction [Unknown]
  - Headache [Not Recovered/Not Resolved]
  - Product use issue [Unknown]

NARRATIVE: CASE EVENT DATE: 202105
